FAERS Safety Report 13337740 (Version 1)
Quarter: 2017Q1

REPORT INFORMATION
  Report Type: Spontaneous
  Country: PL (occurrence: PL)
  Receive Date: 20170315
  Receipt Date: 20170315
  Transmission Date: 20170428
  Serious: Yes (Other)
  Sender: FDA-Public Use
  Company Number: PL-TEVA-749061ACC

PATIENT
  Sex: Female

DRUGS (1)
  1. SUMAMED 500 MG [Suspect]
     Active Substance: AZITHROMYCIN

REACTIONS (8)
  - Nausea [Unknown]
  - Decreased appetite [Unknown]
  - Balance disorder [Unknown]
  - Hearing disability [Unknown]
  - Ear disorder [Unknown]
  - Dizziness [Unknown]
  - Headache [Unknown]
  - Tinnitus [Unknown]

NARRATIVE: CASE EVENT DATE: 20170126
